FAERS Safety Report 9313470 (Version 2)
Quarter: 2013Q2

REPORT INFORMATION
  Report Type: Report from Study
  Country: JP (occurrence: JP)
  Receive Date: 20130528
  Receipt Date: 20130628
  Transmission Date: 20140414
  Serious: Yes (Hospitalization)
  Sender: FDA-Public Use
  Company Number: JP-ELI_LILLY_AND_COMPANY-JP201305005548

PATIENT
  Age: 85 Year
  Sex: Female

DRUGS (2)
  1. TERIPARATIDE [Suspect]
     Route: 058
  2. TERIPARATIDE [Suspect]
     Route: 058

REACTIONS (3)
  - Fall [Recovered/Resolved]
  - Lower limb fracture [Unknown]
  - Pruritus [Not Recovered/Not Resolved]
